FAERS Safety Report 12947508 (Version 1)
Quarter: 2016Q4

REPORT INFORMATION
  Report Type: Spontaneous
  Country: NO (occurrence: NO)
  Receive Date: 20161116
  Receipt Date: 20161116
  Transmission Date: 20170207
  Serious: Yes (Other)
  Sender: FDA-Public Use
  Company Number: NO-UNITED THERAPEUTICS-UNT-2016-017407

PATIENT
  Age: 3 Year
  Sex: Male

DRUGS (1)
  1. REMODULIN [Suspect]
     Active Substance: TREPROSTINIL
     Indication: PRODUCT USED FOR UNKNOWN INDICATION
     Dosage: 50 NM
     Route: 058
     Dates: start: 2015

REACTIONS (2)
  - Pulmonary alveolar haemorrhage [Recovered/Resolved]
  - Anaemia [Recovered/Resolved]
